FAERS Safety Report 18755294 (Version 1)
Quarter: 2021Q1

REPORT INFORMATION
  Report Type: Spontaneous
  Country: US (occurrence: US)
  Receive Date: 20210119
  Receipt Date: 20210119
  Transmission Date: 20210419
  Serious: Yes (Other)
  Sender: FDA-Public Use
  Company Number: US-ENDO PHARMACEUTICALS INC-2020-007943

PATIENT
  Age: 60 Year
  Sex: Male

DRUGS (2)
  1. XIAFLEX [Suspect]
     Active Substance: COLLAGENASE CLOSTRIDIUM HISTOLYTICUM
     Dosage: UNK UNKNOWN, UNKNOWN, CYCLE ONE, INJECITON ONE
     Route: 026
     Dates: start: 20201116
  2. XIAFLEX [Suspect]
     Active Substance: COLLAGENASE CLOSTRIDIUM HISTOLYTICUM
     Indication: PEYRONIE^S DISEASE
     Dosage: UNK UNKNOWN, UNKNOWN, CYCLE ONE, INJECITON TWO
     Route: 026
     Dates: start: 20201118

REACTIONS (2)
  - Corpora cavernosa surgery [Unknown]
  - Fracture of penis [Unknown]

NARRATIVE: CASE EVENT DATE: 20201123
